FAERS Safety Report 24026255 (Version 3)
Quarter: 2024Q3

REPORT INFORMATION
  Report Type: Report from Study
  Country: BE (occurrence: BE)
  Receive Date: 20240628
  Receipt Date: 20240710
  Transmission Date: 20241017
  Serious: No
  Sender: ROCHE
  Company Number: BE-ROCHE-3181026

PATIENT
  Age: 44 Year
  Sex: Male
  Weight: 87.0 kg

DRUGS (7)
  1. ALECTINIB [Suspect]
     Active Substance: ALECTINIB
     Indication: Non-small cell lung cancer metastatic
     Route: 048
     Dates: start: 20200123
  2. ALECTINIB [Suspect]
     Active Substance: ALECTINIB
     Route: 048
     Dates: start: 20210826
  3. VENTOLIN [Concomitant]
     Active Substance: ALBUTEROL SULFATE
     Indication: Dyspnoea
     Dosage: 1 INHALATION
     Route: 055
     Dates: start: 202002
  4. AMOXICILLIN\CLAVULANATE POTASSIUM [Concomitant]
     Active Substance: AMOXICILLIN\CLAVULANATE POTASSIUM
     Indication: Diverticulitis
     Route: 048
     Dates: start: 20220516, end: 20220622
  5. PLENVU [Concomitant]
     Active Substance: ASCORBIC ACID\POLYETHYLENE GLYCOL 3350\POTASSIUM CHLORIDE\SODIUM ASCORBATE\SODIUM CHLORIDE\SODIUM SU
     Dosage: PREPARATION ENDOSCOPY?1 OTHER
     Route: 048
     Dates: start: 20220622, end: 20220623
  6. ENTEROL (BELGIUM) [Concomitant]
     Route: 048
     Dates: start: 20230720, end: 20230724
  7. CORTISONE [Concomitant]
     Active Substance: CORTISONE
     Indication: Psoriasis
     Route: 030
     Dates: start: 202312, end: 202312

REACTIONS (1)
  - Dyspepsia [Not Recovered/Not Resolved]

NARRATIVE: CASE EVENT DATE: 20220624
